FAERS Safety Report 6884144-0 (Version None)
Quarter: 2010Q3

REPORT INFORMATION
  Report Type: 
  Country: None (occurrence: None)
  Receive Date: 20100727
  Receipt Date: 20100720
  Transmission Date: 20110219
  Serious: Yes (Hospitalization)
  Sender: FDA-Public Use
  Company Number: WAES 1007DEU00086

PATIENT
  Age: 59 Year
  Sex: Male

DRUGS (8)
  1. CAP VORINOSTAT [Suspect]
     Indication: SARCOMA METASTATIC
     Dosage: 400 MG/DAILY PO
     Route: 048
     Dates: start: 20100712
  2. AMPHOTERICIN B [Concomitant]
  3. ENOXAPARIN SODIUM [Concomitant]
  4. HYDROCHLOROTHIAZIDE [Concomitant]
  5. HYDROMORPHONE HCL [Concomitant]
  6. PANTOPRAZOLE SODIUM [Concomitant]
  7. PREGABALIN [Concomitant]
  8. SULFAMETHOXAZOLE AND TRIMETHOPRIM [Concomitant]

REACTIONS (1)
  - PNEUMOTHORAX [None]
